FAERS Safety Report 8268276 (Version 3)
Quarter: 2012Q4

REPORT INFORMATION
  Report Type: 
  Country: NL (occurrence: NL)
  Receive Date: 20111130
  Receipt Date: 20120919
  Transmission Date: 20130627
  Serious: Yes (Hospitalization)
  Sender: FDA-Public Use
  Company Number: NL-AMGEN-NLDSP2011062294

PATIENT
  Age: 77 Year
  Sex: Female
  Weight: 85 kg

DRUGS (4)
  1. NEULASTA [Suspect]
     Indication: CHEMOTHERAPY
     Dosage: 6 mg, q3wk
     Route: 058
     Dates: start: 20111103
  2. DOCETAXEL [Suspect]
  3. DOXORUBICIN [Suspect]
  4. METOPROLOL [Concomitant]
     Indication: PALPITATIONS
     Dosage: 50 mg, UNK

REACTIONS (7)
  - Febrile neutropenia [Unknown]
  - Dyspnoea [Recovered/Resolved]
  - Palpitations [Unknown]
  - Malaise [Unknown]
  - Sepsis [Unknown]
  - Myalgia [Unknown]
  - Atrial fibrillation [Unknown]
